FAERS Safety Report 13601976 (Version 2)
Quarter: 2017Q3

REPORT INFORMATION
  Report Type: Spontaneous
  Country: US (occurrence: US)
  Receive Date: 20170601
  Receipt Date: 20170914
  Transmission Date: 20171127
  Serious: No
  Sender: FDA-Public Use
  Company Number: US-PFIZER INC-2017241922

PATIENT
  Age: 66 Year
  Sex: Female

DRUGS (2)
  1. LYRICA [Suspect]
     Active Substance: PREGABALIN
     Dosage: 2 CAPSULES (DF), DAILY
  2. LYRICA [Suspect]
     Active Substance: PREGABALIN
     Dosage: 4 CAPSULES (DF), DAILY
     Dates: start: 20170201

REACTIONS (5)
  - Weight increased [Recovered/Resolved]
  - Pain in extremity [Recovered/Resolved]
  - Neuralgia [Recovered/Resolved]
  - Nausea [Recovered/Resolved]
  - Chills [Recovered/Resolved]

NARRATIVE: CASE EVENT DATE: 20160301
